FAERS Safety Report 5598511-9 (Version None)
Quarter: 2008Q1

REPORT INFORMATION
  Report Type: 
  Country: None (occurrence: None)
  Receive Date: 20080122
  Receipt Date: 20080116
  Transmission Date: 20080703
  Serious: Yes (Other)
  Sender: FDA-Public Use
  Company Number: JP-ASTRAZENECA-2008AP00452

PATIENT
  Age: 45 Year
  Sex: Female

DRUGS (3)
  1. NOLVADEX [Suspect]
     Indication: BREAST CANCER
     Route: 048
  2. ZOLADEX [Suspect]
     Indication: BREAST CANCER
     Route: 058
  3. RADIOTHERAPY [Concomitant]
     Dosage: 50 GY

REACTIONS (1)
  - CRYPTOGENIC ORGANISING PNEUMONIA [None]
